FAERS Safety Report 10623418 (Version 3)
Quarter: 2015Q2

REPORT INFORMATION
  Report Type: Spontaneous
  Country: US (occurrence: US)
  Receive Date: 20141203
  Receipt Date: 20150501
  Transmission Date: 20150821
  Serious: Yes (Hospitalization, Other)
  Sender: FDA-Public Use
  Company Number: US-BAYER-2014-178508

PATIENT
  Age: 25 Year
  Sex: Female
  Weight: 77.98 kg

DRUGS (8)
  1. MIRENA [Suspect]
     Active Substance: LEVONORGESTREL
     Indication: CONTRACEPTION
     Dosage: 20 MCG/24HR, CONT
     Route: 015
     Dates: start: 20080521, end: 20091127
  2. AVELOX [Concomitant]
     Active Substance: MOXIFLOXACIN HYDROCHLORIDE
  3. ROCEPHIN [Concomitant]
     Active Substance: CEFTRIAXONE SODIUM
  4. BENADRYL [Concomitant]
     Active Substance: DIPHENHYDRAMINE HYDROCHLORIDE
  5. CATAFLAM [Concomitant]
     Active Substance: DICLOFENAC POTASSIUM
  6. DILAUDID [Concomitant]
     Active Substance: HYDROMORPHONE HYDROCHLORIDE
  7. ZOFRAN [Concomitant]
     Active Substance: ONDANSETRON HYDROCHLORIDE
  8. PERCOCET [Concomitant]
     Active Substance: ACETAMINOPHEN\OXYCODONE HYDROCHLORIDE

REACTIONS (12)
  - Depression [None]
  - Fear [None]
  - Injury [None]
  - Anxiety [None]
  - Depressed mood [None]
  - Uterine perforation [None]
  - Pelvic pain [None]
  - Abdominal pain [None]
  - Genital haemorrhage [None]
  - Emotional distress [None]
  - Internal injury [None]
  - Medical device discomfort [None]

NARRATIVE: CASE EVENT DATE: 200911
